FAERS Safety Report 6671989-5 (Version None)
Quarter: 2010Q2

REPORT INFORMATION
  Report Type: 
  Country: None (occurrence: None)
  Receive Date: 20100405
  Receipt Date: 20100323
  Transmission Date: 20101027
  Serious: Yes (Other)
  Sender: FDA-Public Use
  Company Number: 1-22017376

PATIENT
  Age: 71 Year
  Sex: Male

DRUGS (3)
  1. METOCLOPRAMIDE [Suspect]
     Dosage: 10 MG 3X/DAY, ORAL
     Route: 048
  2. CARBIDOPA AND LEVODOPA [Concomitant]
  3. TRIHEXYPHENIDYL HCL [Concomitant]

REACTIONS (8)
  - AGGRESSION [None]
  - AGITATION [None]
  - APATHY [None]
  - COGNITIVE DISORDER [None]
  - CONDITION AGGRAVATED [None]
  - ENCEPHALOPATHY [None]
  - PARKINSONISM [None]
  - PERSONALITY CHANGE [None]
